FAERS Safety Report 6218657-1 (Version None)
Quarter: 2009Q2

REPORT INFORMATION
  Report Type: 
  Country: None (occurrence: None)
  Receive Date: 20090608
  Receipt Date: 20090528
  Transmission Date: 20091009
  Serious: Yes (Hospitalization, Other)
  Sender: FDA-Public Use
  Company Number: FR-JNJFOC-20090600600

PATIENT
  Age: 27 Year
  Sex: Male

DRUGS (3)
  1. REMICADE [Suspect]
  2. REMICADE [Suspect]
  3. REMICADE [Suspect]
     Indication: CROHN'S DISEASE

REACTIONS (6)
  - ANAPHYLACTIC REACTION [None]
  - CATHETER SEPSIS [None]
  - COLONIC STENOSIS [None]
  - INFUSION RELATED REACTION [None]
  - PNEUMOPERITONEUM [None]
  - PULMONARY EMBOLISM [None]
